FAERS Safety Report 6890422-1 (Version None)
Quarter: 2010Q3

REPORT INFORMATION
  Report Type: 
  Country: None (occurrence: None)
  Receive Date: 20100730
  Receipt Date: 20081022
  Transmission Date: 20110219
  Serious: Yes (Other)
  Sender: FDA-Public Use
  Company Number: US-PFIZER INC-2008089290

PATIENT
  Age: 37 Year
  Sex: Male

DRUGS (2)
  1. LIPITOR [Suspect]
     Indication: TYPE IIA HYPERLIPIDAEMIA
  2. ZETIA [Concomitant]

REACTIONS (2)
  - ATRIAL FLUTTER [None]
  - PALPITATIONS [None]
